FAERS Safety Report 8029836-5 (Version None)
Quarter: 2011Q4

REPORT INFORMATION
  Report Type: 
  Country: None (occurrence: None)
  Receive Date: 20111130
  Receipt Date: 20110906
  Transmission Date: 20120403
  Serious: Yes (Hospitalization, Other)
  Sender: FDA-Public Use
  Company Number: US201001002915

PATIENT
  Age: 57 Year
  Sex: Male
  Weight: 95.2 kg

DRUGS (15)
  1. VYTORIN [Concomitant]
  2. GLYBURIDE [Concomitant]
  3. GLYBURIDE [Concomitant]
  4. NITROGLYCERIN [Concomitant]
  5. JANUVIA [Concomitant]
  6. ALTRACE (RAMIPRIL) [Concomitant]
  7. PLAVIX [Concomitant]
  8. MULTIVITAMIN [Concomitant]
  9. TRICOR [Concomitant]
  10. RANEXA [Concomitant]
  11. LASIX [Concomitant]
  12. EXENATIDE, DISPOSABLE DEVICE (EXENATIDE PEN ) PEN,DISPOSABLE [Concomitant]
  13. BYETTA [Suspect]
     Indication: TYPE 2 DIABETES MELLITUS
     Dosage: 5 UG, BID, SUBCUTANEOUS
     Route: 058
     Dates: start: 20070601, end: 20070901
  14. ACTOS /SCH/ (PIOGLITAZONE HYDROCHLORIDE) [Concomitant]
  15. KLOR-CON [Concomitant]

REACTIONS (4)
  - ABDOMINAL DISTENSION [None]
  - DECREASED APPETITE [None]
  - BLOOD GLUCOSE INCREASED [None]
  - PANCREATITIS ACUTE [None]
